FAERS Safety Report 8156393-5 (Version None)
Quarter: 2012Q1

REPORT INFORMATION
  Report Type: 
  Country: None (occurrence: None)
  Receive Date: 20120222
  Receipt Date: 20120216
  Transmission Date: 20120608
  Serious: Yes (Hospitalization)
  Sender: FDA-Public Use
  Company Number: GB-TEVA-322993ISR

PATIENT
  Age: 52 Year
  Sex: Female
  Weight: 68.5 kg

DRUGS (8)
  1. WARFARIN SODIUM [Suspect]
     Indication: ATRIAL SEPTAL DEFECT
  2. FERROUS SULFATE TAB [Concomitant]
     Indication: PULMONARY ARTERIAL HYPERTENSION
     Dosage: 200 MILLIGRAM;
     Route: 048
     Dates: start: 20070101
  3. OMEPRAZOLE [Concomitant]
     Indication: PULMONARY ARTERIAL HYPERTENSION
     Dosage: 20 MILLIGRAM;
     Route: 048
     Dates: start: 20070101
  4. BOSENTAN [Suspect]
     Indication: PULMONARY ARTERIAL HYPERTENSION
     Dosage: 250 MILLIGRAM;
     Route: 048
     Dates: start: 20090701
  5. SILDENAFIL CITRATE [Suspect]
     Indication: PULMONARY HYPERTENSION
     Dosage: 60 MILLIGRAM;
     Route: 048
     Dates: start: 20090701
  6. WARFARIN SODIUM [Suspect]
     Indication: COAGULOPATHY
     Dosage: UNK
     Dates: start: 20040101
  7. WARFARIN SODIUM [Suspect]
     Indication: PULMONARY HYPERTENSION
  8. DIGOXIN [Concomitant]
     Indication: PULMONARY ARTERIAL HYPERTENSION
     Dosage: 125 MICROGRAM;
     Route: 048
     Dates: start: 20040101

REACTIONS (6)
  - SINUSITIS [None]
  - ERYTHEMA [None]
  - COUGH [None]
  - NASAL CONGESTION [None]
  - EYE PAIN [None]
  - SINUS HEADACHE [None]
